FAERS Safety Report 7473306-X (Version None)
Quarter: 2011Q1

REPORT INFORMATION
  Report Type: 
  Country: None (occurrence: None)
  Receive Date: 20110302
  Receipt Date: 20100817
  Transmission Date: 20110831
  Serious: Yes (Disabling)
  Sender: FDA-Public Use
  Company Number: 163-21880-10070068

PATIENT
  Age: 83 Year
  Sex: Female

DRUGS (3)
  1. PREDNISONE [Concomitant]
  2. REVLIMID [Suspect]
     Indication: MULTIPLE MYELOMA
     Dosage: 5 MG, 1 IN 1 D, PO
     Route: 048
     Dates: start: 20081201, end: 20100630
  3. COUMADIN [Suspect]
     Indication: ATRIAL FIBRILLATION
     Dosage: 2-3 WEEK

REACTIONS (3)
  - CONDITION AGGRAVATED [None]
  - EPISTAXIS [None]
  - RHINORRHOEA [None]
